FAERS Safety Report 8622025-2 (Version None)
Quarter: 2012Q3

REPORT INFORMATION
  Report Type: 
  Country: None (occurrence: None)
  Receive Date: 20120823
  Receipt Date: 20120823
  Transmission Date: 20120928
  Serious: Yes (Life-Threatening, Hospitalization, Disabling, Other)
  Sender: FDA-Public Use
  Company Number: None

PATIENT
  Sex: Male
  Weight: 85.7298 kg

DRUGS (1)
  1. SUBOXONE [Suspect]
     Dosage: SUBLINGUAL BID
     Route: 060
     Dates: start: 20111220

REACTIONS (1)
  - CONVULSION [None]
